FAERS Safety Report 11932020 (Version 3)
Quarter: 2021Q2

REPORT INFORMATION
  Report Type: Spontaneous
  Country: US (occurrence: US)
  Receive Date: 20160120
  Receipt Date: 20210513
  Transmission Date: 20210716
  Serious: No
  Sender: FDA-Public Use
  Company Number: US-PFIZER INC-2016025180

PATIENT
  Age: 43 Year
  Sex: Female
  Weight: 102 kg

DRUGS (3)
  1. LYRICA [Suspect]
     Active Substance: PREGABALIN
     Dosage: 150 MG (150 MG ONE CAPSULE IN THE MORNING AND 2 CAPSULES AT NIGHT)
  2. LYRICA [Suspect]
     Active Substance: PREGABALIN
     Dosage: 150 MG (1 CAP EVERY MORNING 1 CAPSULE AT LUNCH AND 2 CAPSULES AT NIGHT)
     Route: 048
  3. LYRICA [Suspect]
     Active Substance: PREGABALIN
     Indication: FIBROMYALGIA
     Dosage: 150 MG, 2X/DAY (150 MG IN MORNING AND 150 MG AT NIGHT)

REACTIONS (4)
  - Headache [Not Recovered/Not Resolved]
  - Product dispensing error [Unknown]
  - Off label use [Unknown]
  - Panic reaction [Unknown]

NARRATIVE: CASE EVENT DATE: 201906
